FAERS Safety Report 16702761 (Version 1)
Quarter: 2019Q3

REPORT INFORMATION
  Report Type: Report from Study
  Country: BR (occurrence: BR)
  Receive Date: 20190814
  Receipt Date: 20190814
  Transmission Date: 20191004
  Serious: Yes (Other)
  Sender: FDA-Public Use
  Company Number: BR-SHIRE-BR201920208

PATIENT

DRUGS (3)
  1. HYQVIA [Suspect]
     Active Substance: HUMAN IMMUNOGLOBULIN G\HYALURONIDASE RECOMBINANT HUMAN
     Indication: PRIMARY IMMUNODEFICIENCY SYNDROME
     Dosage: 300 MILLIGRAM, 1X A MONTH
     Route: 058
     Dates: start: 20181206, end: 20190729
  2. NOVALGINA [Concomitant]
     Active Substance: METAMIZOLE SODIUM
     Indication: PRODUCT USED FOR UNKNOWN INDICATION
  3. KIOVIG [Concomitant]
     Active Substance: HUMAN IMMUNOGLOBULIN G
     Indication: PRODUCT USED FOR UNKNOWN INDICATION
     Route: 065

REACTIONS (14)
  - Chills [Recovering/Resolving]
  - Migraine [Recovered/Resolved]
  - Infusion site induration [Unknown]
  - Fatigue [Unknown]
  - Pyrexia [Recovering/Resolving]
  - Ill-defined disorder [Recovering/Resolving]
  - Menopause [Unknown]
  - Gastrooesophageal reflux disease [Unknown]
  - Infusion site pain [Recovering/Resolving]
  - Influenza [Recovered/Resolved]
  - Muscle rigidity [Unknown]
  - Infusion site swelling [Recovering/Resolving]
  - Pneumonia [Unknown]
  - Infusion site erythema [Unknown]

NARRATIVE: CASE EVENT DATE: 20190730
